FAERS Safety Report 9410432 (Version 1)
Quarter: 2013Q3

REPORT INFORMATION
  Report Type: Spontaneous
  Country: BR (occurrence: BR)
  Receive Date: 20130719
  Receipt Date: 20130719
  Transmission Date: 20140515
  Serious: Yes (Other)
  Sender: FDA-Public Use
  Company Number: BR-AMGEN-BRASP2012034428

PATIENT
  Age: 39 Year
  Sex: Female
  Weight: 93.97 kg

DRUGS (4)
  1. ENBREL [Suspect]
     Indication: ANKYLOSING SPONDYLITIS
     Dosage: 50 MG, WEEKLY
     Route: 058
     Dates: start: 2012
  2. ENBREL [Suspect]
     Dosage: 50 MG, WEEKLY
     Route: 065
     Dates: end: 201304
  3. CELEBRA [Concomitant]
     Dosage: UNK
  4. DEPURA [Concomitant]
     Dosage: UNK

REACTIONS (9)
  - Dengue fever [Recovered/Resolved]
  - Rash macular [Unknown]
  - Pain [Unknown]
  - Rheumatic disorder [Unknown]
  - Cystitis [Not Recovered/Not Resolved]
  - Injection site haematoma [Unknown]
  - Injection site pruritus [Unknown]
  - Injection site erythema [Unknown]
  - Injection site pain [Unknown]
